FAERS Safety Report 19173709 (Version 3)
Quarter: 2022Q1

REPORT INFORMATION
  Report Type: Spontaneous
  Country: AU (occurrence: AU)
  Receive Date: 20210423
  Receipt Date: 20220217
  Transmission Date: 20220424
  Serious: No
  Sender: FDA-Public Use
  Company Number: AU-PFIZER INC-2021240400

PATIENT
  Sex: Female

DRUGS (5)
  1. SOMATROPIN [Suspect]
     Active Substance: SOMATROPIN
     Dosage: UNK
     Dates: start: 202103
  2. SOMATROPIN [Suspect]
     Active Substance: SOMATROPIN
     Dosage: UNK
  3. SOMATROPIN [Suspect]
     Active Substance: SOMATROPIN
     Dosage: UNK
  4. SOMATROPIN [Suspect]
     Active Substance: SOMATROPIN
     Dosage: UNK
  5. SOMATROPIN [Suspect]
     Active Substance: SOMATROPIN
     Dosage: UNK

REACTIONS (10)
  - Wrong technique in device usage process [Unknown]
  - Incorrect dose administered by device [Unknown]
  - Device breakage [Unknown]
  - Device mechanical issue [Unknown]
  - Device leakage [Unknown]
  - Poor quality device used [Unknown]
  - Device issue [Unknown]
  - Liquid product physical issue [Unknown]
  - Needle issue [Unknown]
  - Product quality issue [Unknown]
